FAERS Safety Report 5104595-4 (Version None)
Quarter: 2006Q3

REPORT INFORMATION
  Report Type: 
  Country: None (occurrence: None)
  Receive Date: 20060914
  Receipt Date: 20060130
  Transmission Date: 20061208
  Serious: Yes (Other)
  Sender: FDA-Public Use
  Company Number: US-BRISTOL-MYERS SQUIBB COMPANY-13263322

PATIENT
  Age: 58 Year
  Sex: Male
  Weight: 68 kg

DRUGS (5)
  1. BUSPAR [Suspect]
     Indication: ANXIETY
     Dates: start: 20040401
  2. TENORMIN [Suspect]
     Indication: ATRIAL FIBRILLATION
  3. RYTHMODAN [Concomitant]
  4. PROPRANOLOL [Concomitant]
  5. CARTIA XT [Concomitant]

REACTIONS (3)
  - ALOPECIA [None]
  - ATRIAL FIBRILLATION [None]
  - LIBIDO DECREASED [None]
